FAERS Safety Report 22595517 (Version 1)
Quarter: 2023Q2

REPORT INFORMATION
  Report Type: Spontaneous
  Country: CN (occurrence: CN)
  Receive Date: 20230613
  Receipt Date: 20230613
  Transmission Date: 20230722
  Serious: Yes (Hospitalization, Other)
  Sender: FDA-Public Use
  Company Number: CN-009507513-2306CHN005345

PATIENT
  Age: 72 Year
  Sex: Female
  Weight: 60 kg

DRUGS (3)
  1. KEYTRUDA [Suspect]
     Active Substance: PEMBROLIZUMAB
     Indication: Lung neoplasm malignant
     Dosage: 200 MG DAY 1, Q21D (ALSO REPORTED AS ONCE)
     Route: 041
     Dates: start: 20230321
  2. PEMETREXED DISODIUM [Suspect]
     Active Substance: PEMETREXED DISODIUM
     Indication: Lung neoplasm malignant
     Dosage: 700 MG, ONCE FOR FOUR CYCLES
     Route: 041
     Dates: start: 20230321
  3. CISPLATIN [Suspect]
     Active Substance: CISPLATIN
     Indication: Lung neoplasm malignant
     Dosage: 30 MG, QD, D1-3
     Route: 041
     Dates: start: 20230321, end: 20230323

REACTIONS (3)
  - Myelosuppression [Recovering/Resolving]
  - Therapeutic product effect incomplete [Unknown]
  - Therapy partial responder [Unknown]

NARRATIVE: CASE EVENT DATE: 20230301
